FAERS Safety Report 24064333 (Version 1)
Quarter: 2024Q3

REPORT INFORMATION
  Report Type: Spontaneous
  Country: US (occurrence: US)
  Receive Date: 20240709
  Receipt Date: 20240709
  Transmission Date: 20241017
  Serious: No
  Sender: ROCHE
  Company Number: US-ROCHE-10000020073

PATIENT
  Sex: Female

DRUGS (1)
  1. ROZLYTREK [Suspect]
     Active Substance: ENTRECTINIB
     Indication: Metastasis
     Route: 048
     Dates: start: 202406

REACTIONS (6)
  - Dizziness [Unknown]
  - Fatigue [Unknown]
  - Muscular weakness [Unknown]
  - Mood altered [Unknown]
  - Taste disorder [Unknown]
  - Anxiety [Unknown]
